FAERS Safety Report 25207490 (Version 1)
Quarter: 2025Q2

REPORT INFORMATION
  Report Type: Spontaneous
  Country: US (occurrence: US)
  Receive Date: 20250417
  Receipt Date: 20250417
  Transmission Date: 20250716
  Serious: No
  Sender: BAUSCH AND LOMB
  Company Number: US-BAUSCH-BL-2025-004721

PATIENT
  Age: 18 Year
  Sex: Male

DRUGS (1)
  1. TRIENTINE [Suspect]
     Active Substance: TRIENTINE
     Indication: Hepato-lenticular degeneration
     Route: 065

REACTIONS (3)
  - Illness [Unknown]
  - Blood copper increased [Recovered/Resolved]
  - Therapy non-responder [Unknown]
